FAERS Safety Report 13072164 (Version 1)
Quarter: 2016Q4

REPORT INFORMATION
  Report Type: Spontaneous
  Country: ES (occurrence: ES)
  Receive Date: 20161229
  Receipt Date: 20161229
  Transmission Date: 20170207
  Serious: Yes (Hospitalization)
  Sender: FDA-Public Use
  Company Number: PHHY2016ES177214

PATIENT
  Age: 47 Year
  Sex: Male

DRUGS (4)
  1. METAMIZOLE [Concomitant]
     Active Substance: METAMIZOLE
     Indication: ORAL INFECTION
     Route: 065
  2. ACETAMINOFEN [Concomitant]
     Active Substance: ACETAMINOPHEN
     Indication: ORAL INFECTION
     Route: 065
  3. AMOXICILLIN. [Suspect]
     Active Substance: AMOXICILLIN
     Indication: ORAL INFECTION
     Route: 065
  4. IBUPROFEN. [Concomitant]
     Active Substance: IBUPROFEN
     Indication: ORAL INFECTION
     Route: 065

REACTIONS (2)
  - Tubulointerstitial nephritis [Unknown]
  - Hypersensitivity vasculitis [Unknown]
